FAERS Safety Report 15314105 (Version 1)
Quarter: 2018Q3

REPORT INFORMATION
  Report Type: Report from Study
  Country: JP (occurrence: JP)
  Receive Date: 20180824
  Receipt Date: 20180824
  Transmission Date: 20181010
  Serious: Yes (Other)
  Sender: FDA-Public Use
  Company Number: JP-BIOVERATIV-2016BI00299128

PATIENT
  Sex: Male
  Weight: 63 kg

DRUGS (3)
  1. ALPROLIX [Suspect]
     Active Substance: EFTRENONACOG ALFA
     Indication: FACTOR IX DEFICIENCY
     Dosage: ROUTINE TREATMENT
     Route: 042
     Dates: start: 20150914
  2. ALPROLIX [Suspect]
     Active Substance: EFTRENONACOG ALFA
     Dosage: ADDITIONAL TREATMENT
     Route: 042
     Dates: start: 20160926, end: 20160928
  3. BENEFIX [Concomitant]
     Active Substance: COAGULATION FACTOR IX RECOMBINANT HUMAN\ISOPROPYL ALCOHOL
     Indication: TOOTH EXTRACTION
     Route: 065
     Dates: start: 20151020, end: 20151021

REACTIONS (1)
  - Shoulder arthroplasty [Recovered/Resolved]

NARRATIVE: CASE EVENT DATE: 20160926
